FAERS Safety Report 8869497 (Version 1)
Quarter: 2012Q4

REPORT INFORMATION
  Report Type: 
  Country: US (occurrence: US)
  Receive Date: 20121026
  Receipt Date: 20121026
  Transmission Date: 20130627
  Serious: No
  Sender: FDA-Public Use
  Company Number: US-AMGEN-USASP2012042850

PATIENT
  Age: 60 Year
  Sex: Female

DRUGS (3)
  1. ENBREL [Suspect]
     Indication: PSORIASIS
     Dosage: 50 mg, 2 times/wk
     Route: 058
     Dates: start: 201206
  2. AMBIEN [Concomitant]
     Dosage: UNK, At bedtime
  3. ZYRTEC [Concomitant]
     Dosage: At bedtime

REACTIONS (2)
  - Headache [Unknown]
  - Injection site bruising [Unknown]
